FAERS Safety Report 25219011 (Version 2)
Quarter: 2025Q2

REPORT INFORMATION
  Report Type: Spontaneous
  Country: US (occurrence: US)
  Receive Date: 20250421
  Receipt Date: 20250509
  Transmission Date: 20250717
  Serious: No
  Sender: SUNOVION
  Company Number: US-SMPA-2025SPA004551AA

PATIENT

DRUGS (1)
  1. GEMTESA [Suspect]
     Active Substance: VIBEGRON
     Indication: Hypertonic bladder
     Route: 048
     Dates: start: 202503

REACTIONS (4)
  - Urinary incontinence [Unknown]
  - Pollakiuria [Unknown]
  - Urinary retention [Unknown]
  - Therapeutic product effect decreased [Unknown]
